FAERS Safety Report 6032809-5 (Version None)
Quarter: 2009Q1

REPORT INFORMATION
  Report Type: 
  Country: None (occurrence: None)
  Receive Date: 20090107
  Receipt Date: 20090107
  Transmission Date: 20090719
  Serious: Yes (Disabling)
  Sender: FDA-Public Use
  Company Number: None

PATIENT
  Age: 10 Year
  Sex: Male
  Weight: 47.6277 kg

DRUGS (3)
  1. ZYRTEC [Suspect]
     Indication: ASTHMA
     Dosage: 10MG 1 DAY PO
     Route: 048
     Dates: start: 20070501, end: 20080801
  2. ZYRTEC [Suspect]
     Indication: MULTIPLE ALLERGIES
     Dosage: 10MG 1 DAY PO
     Route: 048
     Dates: start: 20070501, end: 20080801
  3. . [Concomitant]

REACTIONS (5)
  - BLOOD HEAVY METAL INCREASED [None]
  - BRAIN INJURY [None]
  - HYPOACUSIS [None]
  - TIC [None]
  - TOURETTE'S DISORDER [None]
